FAERS Safety Report 7899857-1 (Version None)
Quarter: 2011Q4

REPORT INFORMATION
  Report Type: 
  Country: None (occurrence: None)
  Receive Date: 20111107
  Receipt Date: 20110925
  Transmission Date: 20120403
  Serious: No
  Sender: FDA-Public Use
  Company Number: US-AMGEN-USASP2011045893

PATIENT
  Age: 65 Year
  Sex: Female
  Weight: 47.619 kg

DRUGS (1)
  1. ENBREL [Suspect]
     Indication: PSORIASIS
     Dosage: 50 MG, 2 TIMES/WK
     Route: 058
     Dates: start: 20110712

REACTIONS (5)
  - INCREASED TENDENCY TO BRUISE [None]
  - SKIN LESION [None]
  - DIARRHOEA [None]
  - NAUSEA [None]
  - PUSTULAR PSORIASIS [None]
